FAERS Safety Report 10082858 (Version 1)
Quarter: 2014Q2

REPORT INFORMATION
  Report Type: Report from Study
  Country: IN (occurrence: IN)
  Receive Date: 20140416
  Receipt Date: 20140416
  Transmission Date: 20141212
  Serious: Yes (Other)
  Sender: FDA-Public Use
  Company Number: PHHY2014IN045914

PATIENT
  Age: 64 Year
  Sex: Female
  Weight: 59 kg

DRUGS (1)
  1. ACLASTA [Suspect]
     Indication: OSTEOPOROSIS
     Dosage: UNK (ONCE IN A YEAR)
     Route: 042
     Dates: start: 20130719

REACTIONS (3)
  - Fracture [Recovering/Resolving]
  - Joint swelling [Recovered/Resolved]
  - Arthralgia [Recovered/Resolved]
